FAERS Safety Report 4376315-2 (Version None)
Quarter: 2004Q2

REPORT INFORMATION
  Report Type: 
  Country: None (occurrence: None)
  Receive Date: 20040608
  Receipt Date: 20030124
  Transmission Date: 20050107
  Serious: Yes (Other)
  Sender: FDA-Public Use
  Company Number: 200310303BCC

PATIENT
  Age: 22 Year
  Sex: Male
  Weight: 104.3273 kg

DRUGS (1)
  1. ALEVE [Suspect]
     Indication: HEADACHE
     Dosage: 440 MG, ONCE, ORAL
     Route: 048
     Dates: start: 20030122

REACTIONS (5)
  - BLISTER [None]
  - HYPERSENSITIVITY [None]
  - ORAL MUCOSAL BLISTERING [None]
  - PRURITUS [None]
  - SWELLING [None]
